FAERS Safety Report 11568014 (Version 1)
Quarter: 2015Q3

REPORT INFORMATION
  Report Type: Spontaneous
  Country: US (occurrence: US)
  Receive Date: 20150916
  Receipt Date: 20150916
  Transmission Date: 20151125
  Serious: No
  Sender: FDA-Public Use
  Company Number: US-ELI_LILLY_AND_COMPANY-US200908001619

PATIENT
  Sex: Female

DRUGS (8)
  1. FORTEO [Suspect]
     Active Substance: TERIPARATIDE
     Dosage: UNK, UNKNOWN
     Route: 065
     Dates: start: 200902, end: 200906
  2. METOPROLOL [Concomitant]
     Active Substance: METOPROLOL
  3. CALCIUM [Concomitant]
     Active Substance: CALCIUM
     Dosage: 1200 MG, DAILY (1/D)
  4. LIPITOR [Concomitant]
     Active Substance: ATORVASTATIN CALCIUM
  5. MULTIVITAMIN [Concomitant]
     Active Substance: VITAMINS
  6. FORTEO [Suspect]
     Active Substance: TERIPARATIDE
     Dosage: UNK, QOD
     Route: 065
     Dates: start: 2009, end: 20090724
  7. VITAMIN D [Concomitant]
     Active Substance: CHOLECALCIFEROL
  8. ANTIHYPERTENSIVES [Concomitant]
     Active Substance: UNSPECIFIED INGREDIENT
     Dates: start: 200904

REACTIONS (12)
  - Hypertension [Unknown]
  - Gait disturbance [Recovering/Resolving]
  - Blood calcium increased [Not Recovered/Not Resolved]
  - Musculoskeletal chest pain [Recovering/Resolving]
  - Pain in extremity [Recovering/Resolving]
  - Telangiectasia [Recovering/Resolving]
  - Peripheral swelling [Recovering/Resolving]
  - Discomfort [Unknown]
  - Bone pain [Recovering/Resolving]
  - Arrhythmia [Unknown]
  - Hypoaesthesia [Recovering/Resolving]
  - Choking [Unknown]

NARRATIVE: CASE EVENT DATE: 2009
